FAERS Safety Report 21102854 (Version 2)
Quarter: 2022Q3

REPORT INFORMATION
  Report Type: Spontaneous
  Country: US (occurrence: None)
  Receive Date: 20220720
  Receipt Date: 20220811
  Transmission Date: 20221026
  Serious: No
  Sender: FDA-Public Use
  Company Number: 2022A255246

PATIENT
  Age: 71 Year
  Sex: Male
  Weight: 86.2 kg

DRUGS (1)
  1. BYDUREON BCISE [Suspect]
     Active Substance: EXENATIDE
     Indication: Diabetes mellitus
     Dosage: 3.0MG UNKNOWN
     Route: 058
     Dates: start: 20220620, end: 20220726

REACTIONS (4)
  - Injection site haemorrhage [Unknown]
  - Wrong technique in device usage process [Unknown]
  - Device issue [Unknown]
  - Device leakage [Unknown]
